FAERS Safety Report 10646694 (Version 2)
Quarter: 2015Q1

REPORT INFORMATION
  Report Type: Spontaneous
  Country: CN (occurrence: CN)
  Receive Date: 20141211
  Receipt Date: 20150318
  Transmission Date: 20150720
  Serious: Yes (Hospitalization, Disabling)
  Sender: FDA-Public Use
  Company Number: CN-PFIZER INC-2014337538

PATIENT
  Age: 37 Year
  Sex: Male
  Weight: 105 kg

DRUGS (2)
  1. VORICONAZOLE. [Suspect]
     Active Substance: VORICONAZOLE
     Indication: INFECTION
     Dosage: 200 MG, 2X/DAY
     Route: 041
     Dates: start: 20131015, end: 20131021
  2. ZYVOX [Suspect]
     Active Substance: LINEZOLID
     Indication: INFECTION
     Dosage: 0.6 G, 2X/DAY
     Route: 048
     Dates: start: 20131017, end: 20131021

REACTIONS (2)
  - Swelling [Recovering/Resolving]
  - Blood creatinine abnormal [Recovering/Resolving]

NARRATIVE: CASE EVENT DATE: 20131021
